FAERS Safety Report 25834823 (Version 1)
Quarter: 2025Q3

REPORT INFORMATION
  Report Type: Spontaneous
  Country: US (occurrence: US)
  Receive Date: 20250923
  Receipt Date: 20250923
  Transmission Date: 20251021
  Serious: Yes (Life-Threatening, Other)
  Sender: DR REDDYS
  Company Number: US-DRL-USA-USA/2025/09/014218

PATIENT
  Age: 24 Year
  Sex: Male

DRUGS (1)
  1. CALCITONIN [Suspect]
     Active Substance: CALCITONIN
     Indication: Hypercalcaemia

REACTIONS (1)
  - Drug ineffective [Unknown]
